FAERS Safety Report 8510472-9 (Version None)
Quarter: 2012Q3

REPORT INFORMATION
  Report Type: 
  Country: None (occurrence: None)
  Receive Date: 20120715
  Receipt Date: 20120711
  Transmission Date: 20120928
  Serious: Yes (Other)
  Sender: FDA-Public Use
  Company Number: PHHY2012TR059566

PATIENT
  Age: 63 Year
  Sex: Male

DRUGS (2)
  1. AMLODIPINE [Suspect]
     Indication: HYPERTENSION
     Dosage: 10 MG, UNK
  2. ASPIRIN [Concomitant]
     Dosage: 300 MG, UNK

REACTIONS (3)
  - INSOMNIA [None]
  - DELIRIUM [None]
  - AGITATION [None]
